FAERS Safety Report 19012236 (Version 2)
Quarter: 2021Q1

REPORT INFORMATION
  Report Type: Report from Study
  Country: US (occurrence: US)
  Receive Date: 20210316
  Receipt Date: 20210319
  Transmission Date: 20210420
  Serious: Yes (Hospitalization, Other)
  Sender: FDA-Public Use
  Company Number: US-AGIOS-2103US02577

PATIENT

DRUGS (7)
  1. MARINOL                            /00003301/ [Concomitant]
     Active Substance: ALLOPURINOL
     Route: 065
  2. ACYCLOVIR                          /00587301/ [Concomitant]
     Active Substance: ACYCLOVIR
     Route: 065
  3. VORICONAZOLE. [Concomitant]
     Active Substance: VORICONAZOLE
     Route: 065
  4. PROBIOTIC PEARLS [Concomitant]
     Route: 065
  5. TIBSOVO [Suspect]
     Active Substance: IVOSIDENIB
     Indication: PRODUCT USED FOR UNKNOWN INDICATION
     Dosage: 250 MILLIGRAM, QD
     Route: 048
     Dates: start: 20210220
  6. DEXAMETHASONE. [Concomitant]
     Active Substance: DEXAMETHASONE
     Route: 065
  7. ALLOPURINOL. [Concomitant]
     Active Substance: ALLOPURINOL
     Route: 065

REACTIONS (6)
  - Anuria [Unknown]
  - Off label use [Unknown]
  - Pyrexia [Unknown]
  - Blood pressure decreased [Unknown]
  - Chromaturia [Unknown]
  - Fatigue [Unknown]

NARRATIVE: CASE EVENT DATE: 20210220
